FAERS Safety Report 9235196 (Version 1)
Quarter: 2013Q2

REPORT INFORMATION
  Report Type: Spontaneous
  Country: US (occurrence: US)
  Receive Date: 20130417
  Receipt Date: 20130417
  Transmission Date: 20140414
  Serious: No
  Sender: FDA-Public Use
  Company Number: US-009507513-1304USA007158

PATIENT
  Age: 73 Year
  Sex: Female

DRUGS (1)
  1. DULERA [Suspect]
     Indication: DYSPNOEA
     Dosage: 2 DF, BID (2 SPRAYS IN MORNING AND 2 SPRAYS AT NIGHT)
     Dates: start: 20120711, end: 20130401

REACTIONS (6)
  - Head discomfort [Recovering/Resolving]
  - Dysphonia [Recovering/Resolving]
  - Dysgraphia [Recovering/Resolving]
  - Headache [Recovering/Resolving]
  - Tremor [Recovering/Resolving]
  - Tremor [Recovering/Resolving]
